FAERS Safety Report 4309623-1 (Version None)
Quarter: 2004Q1

REPORT INFORMATION
  Report Type: 
  Country: None (occurrence: None)
  Receive Date: 20040302
  Receipt Date: 20040220
  Transmission Date: 20041129
  Serious: Yes (Other)
  Sender: FDA-Public Use
  Company Number: US-JNJFOC-20040204912

PATIENT
  Age: 66 Year
  Sex: Male

DRUGS (8)
  1. REMICADE [Suspect]
     Indication: RHEUMATOID ARTHRITIS
     Dosage: INTRAVENOUS
     Route: 042
     Dates: start: 20010404, end: 20030301
  2. LOTENSIN [Concomitant]
  3. METHOTREXATE [Concomitant]
  4. SYNTHROID [Concomitant]
  5. PREDNISONE [Concomitant]
  6. GLUCOSAMINE /CHONDROITIN (GLUCOSAMINE W/CHONDROITIN SULFATES) TABLETS [Concomitant]
  7. ASPIRIN [Concomitant]
  8. VITAMINS (VITAMINS) [Concomitant]

REACTIONS (1)
  - GASTRIC CANCER [None]
